FAERS Safety Report 10097670 (Version 1)
Quarter: 2014Q2

REPORT INFORMATION
  Report Type: Spontaneous
  Country: US (occurrence: US)
  Receive Date: 20140423
  Receipt Date: 20140423
  Transmission Date: 20141212
  Serious: No
  Sender: FDA-Public Use
  Company Number: US-BIOGENIDEC-2014BI034437

PATIENT
  Age: 54 Year
  Sex: Female

DRUGS (9)
  1. TECFIDERA [Suspect]
     Indication: MULTIPLE SCLEROSIS
     Route: 048
     Dates: start: 201403
  2. LORAZEPAM [Concomitant]
  3. LISINOPRIL [Concomitant]
  4. TYLENOL [Concomitant]
  5. LIDOCAINE [Concomitant]
  6. CALCIUM+D [Concomitant]
  7. TOPAMAX [Concomitant]
  8. PLAVIX [Concomitant]
  9. MOTRIN [Concomitant]

REACTIONS (5)
  - Palpitations [Not Recovered/Not Resolved]
  - Migraine [Not Recovered/Not Resolved]
  - Abdominal distension [Unknown]
  - Back pain [Unknown]
  - Abdominal pain [Unknown]
